FAERS Safety Report 9627736 (Version 4)
Quarter: 2014Q1

REPORT INFORMATION
  Report Type: Spontaneous
  Country: US (occurrence: US)
  Receive Date: 20131016
  Receipt Date: 20140226
  Transmission Date: 20141002
  Serious: Yes (Other)
  Sender: FDA-Public Use
  Company Number: US-LUNDBECK-DKLU1091568

PATIENT
  Age: 6 Year
  Sex: Male

DRUGS (13)
  1. SABRIL (TABLET) [Suspect]
     Indication: INFANTILE SPASMS
     Route: 048
     Dates: start: 20130515
  2. SABRIL (TABLET) [Suspect]
     Indication: CONVULSION
     Route: 048
  3. SABRIL (TABLET) [Suspect]
     Route: 048
  4. SABRIL (TABLET) [Suspect]
     Route: 048
  5. SABRIL (FOR ORAL SOLUTION) [Suspect]
     Indication: INFANTILE SPASMS
     Route: 048
     Dates: start: 20130713
  6. SABRIL (FOR ORAL SOLUTION) [Suspect]
     Route: 048
     Dates: start: 20130821
  7. SABRIL (FOR ORAL SOLUTION) [Suspect]
     Route: 048
     Dates: start: 20130821
  8. SABRIL (FOR ORAL SOLUTION) [Suspect]
     Route: 048
  9. ONFI [Concomitant]
     Indication: CONVULSION
  10. KEPPRA [Concomitant]
     Indication: CONVULSION
  11. ZONEGRAN [Concomitant]
     Indication: CONVULSION
     Dosage: WEANING 25 MG WEEKLY
  12. DEPAKOTE [Concomitant]
     Indication: CONVULSION
  13. KLONOPIN [Concomitant]
     Indication: CONVULSION

REACTIONS (3)
  - Convulsion [Recovered/Resolved]
  - Aggression [Not Recovered/Not Resolved]
  - Drug ineffective [Not Recovered/Not Resolved]
